FAERS Safety Report 19074833 (Version 2)
Quarter: 2021Q2

REPORT INFORMATION
  Report Type: Spontaneous
  Country: DE (occurrence: DE)
  Receive Date: 20210330
  Receipt Date: 20210409
  Transmission Date: 20210717
  Serious: Yes (Death, Other)
  Sender: FDA-Public Use
  Company Number: DE-PFIZER INC-2021310836

PATIENT
  Sex: Female
  Weight: 3.34 kg

DRUGS (4)
  1. CYTOTEC [Suspect]
     Active Substance: MISOPROSTOL
     Dosage: 150 UNK, 50 MCG AT 9:20 AM, 50 MCG AT 1:45 PM, 50 MCG AT 5:45 PM
     Route: 064
     Dates: start: 20150921, end: 20150921
  2. CYTOTEC [Suspect]
     Active Substance: MISOPROSTOL
     Dosage: 325 UG (DOSAGE TEXT: 25,50,50,50,50,50,50)
     Route: 064
     Dates: start: 20150920, end: 20150923
  3. CYTOTEC [Suspect]
     Active Substance: MISOPROSTOL
     Indication: LABOUR INDUCTION
     Dosage: 75 UG, 1X/DAY, 25MCG AT 2 P.M. 50MCG AT 9:40 P.M.
     Route: 064
     Dates: start: 20150920, end: 20150920
  4. CYTOTEC [Suspect]
     Active Substance: MISOPROSTOL
     Dosage: 100 UNK,50MCG AT 8:10 AM 50MCG AT 1:25 PM
     Route: 064
     Dates: start: 20150922, end: 20150922

REACTIONS (3)
  - Maternal exposure during delivery [Fatal]
  - Death neonatal [Fatal]
  - Foetal distress syndrome [Fatal]

NARRATIVE: CASE EVENT DATE: 20150920
